FAERS Safety Report 8842901 (Version 1)
Quarter: 2012Q4

REPORT INFORMATION
  Report Type: 
  Country: TR (occurrence: TR)
  Receive Date: 20121016
  Receipt Date: 20121016
  Transmission Date: 20130627
  Serious: Yes (Other)
  Sender: FDA-Public Use
  Company Number: TR-WATSON-2012-17598

PATIENT
  Age: 4 Year
  Sex: Male

DRUGS (1)
  1. VALPROATE SODIUM [Suspect]
     Indication: CONVULSION
     Dosage: 150 mg, daily
     Route: 065

REACTIONS (2)
  - Kluver-Bucy syndrome [Recovered/Resolved]
  - Frontotemporal dementia [Recovered/Resolved]
